FAERS Safety Report 19417771 (Version 1)
Quarter: 2021Q2

REPORT INFORMATION
  Report Type: Spontaneous
  Country: US (occurrence: US)
  Receive Date: 20210615
  Receipt Date: 20210615
  Transmission Date: 20210717
  Serious: Yes (Death, Other)
  Sender: FDA-Public Use
  Company Number: US-MACLEODS PHARMACEUTICALS US LTD-MAC2021031481

PATIENT

DRUGS (10)
  1. ACYCLOVIR. [Suspect]
     Active Substance: ACYCLOVIR
     Indication: PNEUMONIA CYTOMEGALOVIRAL
     Dosage: UNK UNK, TID, 1500 MG/M2 BODY SURFACE AREA D
     Route: 042
  2. CYCLOSPORINE. [Concomitant]
     Active Substance: CYCLOSPORINE
     Indication: PROPHYLAXIS AGAINST GRAFT VERSUS HOST DISEASE
     Dosage: UNK
     Route: 048
  3. METHOTREXATE. [Concomitant]
     Active Substance: METHOTREXATE
     Dosage: UNK, EVERY 14 DAYS TILL 102 DAY OF TRANSPLANTATION
     Route: 037
  4. HUMAN ALPHA INTERFERON [Concomitant]
     Dosage: UNK, 2 X 10^4 U/KG BODY WEIGHT D
     Route: 030
  5. ACYCLOVIR. [Suspect]
     Active Substance: ACYCLOVIR
     Dosage: UNK, INCREASED TO 1800 MG/M2 BODY SURFACE AREA D
     Route: 042
  6. ACYCLOVIR. [Suspect]
     Active Substance: ACYCLOVIR
     Dosage: UNK,INCREASED TO 2400 MG/M2 BODY SURFACE AREA D
     Route: 042
  7. HUMAN ALPHA INTERFERON [Concomitant]
     Indication: PNEUMONIA CYTOMEGALOVIRAL
     Dosage: UNK UNK, BID, UNK, 2 X 10^4 U/KG BODY WEIGHT D
     Route: 030
  8. ACYCLOVIR. [Suspect]
     Active Substance: ACYCLOVIR
     Dosage: UNK, 1800 MG/M2 BODY SURFACE AREA D
     Route: 042
  9. METHOTREXATE. [Concomitant]
     Active Substance: METHOTREXATE
     Indication: PROPHYLAXIS AGAINST GRAFT VERSUS HOST DISEASE
     Dosage: UNK
     Route: 042
  10. METHOTREXATE. [Concomitant]
     Active Substance: METHOTREXATE
     Dosage: UNK, 10 MG/M2 BODY SURFACE AREA (WITH 12?MG MAXIMUM DOSE)
     Route: 037

REACTIONS (8)
  - Tremor [Unknown]
  - CSF myelin basic protein increased [Unknown]
  - Agitation [Unknown]
  - Disorientation [Unknown]
  - Neurotoxicity [Unknown]
  - Autonomic nervous system imbalance [Unknown]
  - Alanine aminotransferase increased [Unknown]
  - Pneumonia cytomegaloviral [Fatal]
